FAERS Safety Report 12089191 (Version 1)
Quarter: 2016Q1

REPORT INFORMATION
  Report Type: Spontaneous
  Country: None (occurrence: None)
  Receive Date: 20160217
  Receipt Date: 20160217
  Transmission Date: 20160526
  Serious: No
  Sender: FDA-Public Use
  Company Number: None

PATIENT
  Age: 39 Year
  Sex: Male
  Weight: 99.79 kg

DRUGS (2)
  1. DIETARY SUPPLEMENT [Suspect]
     Active Substance: DIETARY SUPPLEMENT
  2. LE-VEL (VITAMINS) [Suspect]
     Active Substance: VITAMINS
     Indication: BOWEL MOVEMENT IRREGULARITY

REACTIONS (3)
  - Headache [None]
  - Dizziness [None]
  - Rash [None]

NARRATIVE: CASE EVENT DATE: 20160216
